FAERS Safety Report 5977648-6 (Version None)
Quarter: 2008Q4

REPORT INFORMATION
  Report Type: 
  Country: None (occurrence: None)
  Receive Date: 20081203
  Receipt Date: 20081123
  Transmission Date: 20090506
  Serious: Yes (Hospitalization)
  Sender: FDA-Public Use
  Company Number: AE-ABBOTT-08P-166-0489520-00

PATIENT
  Age: 64 Year
  Sex: Female

DRUGS (1)
  1. HUMIRA [Suspect]
     Indication: RHEUMATOID ARTHRITIS
     Route: 058

REACTIONS (5)
  - CENTRAL NERVOUS SYSTEM LESION [None]
  - GRANULOMA [None]
  - LYMPHADENOPATHY [None]
  - PYREXIA [None]
  - SPLENOMEGALY [None]
